FAERS Safety Report 12929968 (Version 2)
Quarter: 2016Q4

REPORT INFORMATION
  Report Type: Report from Study
  Country: CA (occurrence: CA)
  Receive Date: 20161110
  Receipt Date: 20161208
  Transmission Date: 20170207
  Serious: Yes (Other)
  Sender: FDA-Public Use
  Company Number: CA-SA-2015SA217612

PATIENT
  Age: 45 Year
  Sex: Female

DRUGS (12)
  1. AMANTADINE [Concomitant]
     Active Substance: AMANTADINE
     Indication: MULTIPLE SCLEROSIS
     Route: 048
  2. VITAMIN B12 [Concomitant]
     Active Substance: CYANOCOBALAMIN
     Indication: SUPPLEMENTATION THERAPY
     Route: 048
  3. DIMENHYDRINATE. [Concomitant]
     Active Substance: DIMENHYDRINATE
     Indication: PREMEDICATION
     Route: 048
     Dates: start: 20151214, end: 20151218
  4. RANITIDINE. [Concomitant]
     Active Substance: RANITIDINE
     Indication: PREMEDICATION
     Route: 048
     Dates: start: 20151214, end: 20160111
  5. LEMTRADA [Suspect]
     Active Substance: ALEMTUZUMAB
     Indication: RELAPSING-REMITTING MULTIPLE SCLEROSIS
     Route: 041
     Dates: start: 20151214, end: 20151218
  6. INDOMETHACIN. [Suspect]
     Active Substance: INDOMETHACIN
     Indication: BLADDER DISORDER
     Dosage: 100MG, 12 SUPP
     Route: 065
     Dates: start: 20160820
  7. METHYLPREDNISOLONE. [Concomitant]
     Active Substance: METHYLPREDNISOLONE
     Indication: PREMEDICATION
     Route: 042
     Dates: start: 20151214, end: 20151218
  8. VITAMIN C [Concomitant]
     Active Substance: ASCORBIC ACID
     Indication: SUPPLEMENTATION THERAPY
     Route: 048
  9. TAMSULOSIN [Suspect]
     Active Substance: TAMSULOSIN
     Indication: BLADDER DISORDER
     Route: 048
     Dates: start: 20160820
  10. VITAMIN D [Concomitant]
     Active Substance: CHOLECALCIFEROL
     Indication: SUPPLEMENTATION THERAPY
     Route: 048
  11. ACYCLOVIR. [Concomitant]
     Active Substance: ACYCLOVIR
     Indication: PREMEDICATION
     Route: 048
     Dates: start: 20151214
  12. ACYCLOVIR. [Concomitant]
     Active Substance: ACYCLOVIR
     Indication: PROPHYLAXIS
     Route: 048
     Dates: start: 20151214

REACTIONS (41)
  - Neutrophil percentage increased [Not Recovered/Not Resolved]
  - Urine analysis abnormal [Unknown]
  - Musculoskeletal pain [Recovering/Resolving]
  - Headache [Recovered/Resolved]
  - Lymphopenia [Not Recovered/Not Resolved]
  - Urinary tract infection [Recovered/Resolved]
  - Expanded disability status scale score increased [Not Recovered/Not Resolved]
  - Urinary retention [Recovered/Resolved]
  - Eye swelling [Recovered/Resolved]
  - Chromaturia [Recovered/Resolved]
  - Urinary sediment present [Not Recovered/Not Resolved]
  - Dizziness [Recovered/Resolved]
  - Mean platelet volume decreased [Not Recovered/Not Resolved]
  - Chills [Recovered/Resolved]
  - White blood cell count decreased [Not Recovered/Not Resolved]
  - Specific gravity urine increased [Not Recovered/Not Resolved]
  - Urinary incontinence [Not Recovered/Not Resolved]
  - Rash pruritic [Recovered/Resolved]
  - Lymphocyte percentage decreased [Not Recovered/Not Resolved]
  - Asthenia [Not Recovered/Not Resolved]
  - Musculoskeletal stiffness [Recovered/Resolved]
  - Urine odour abnormal [Recovered/Resolved]
  - Erythema [Recovered/Resolved]
  - Cystitis [Recovered/Resolved]
  - Abdominal discomfort [Recovered/Resolved]
  - Rash macular [Recovered/Resolved]
  - Dysuria [Recovering/Resolving]
  - Hypotension [Recovered/Resolved]
  - Muscular weakness [Not Recovered/Not Resolved]
  - Condition aggravated [Not Recovered/Not Resolved]
  - Lymphocyte count decreased [Not Recovered/Not Resolved]
  - Hypoaesthesia [Recovering/Resolving]
  - Muscle spasms [Recovered/Resolved]
  - Rash erythematous [Recovered/Resolved]
  - Limb discomfort [Not Recovered/Not Resolved]
  - Urine abnormality [Recovered/Resolved]
  - Leukocyturia [Recovered/Resolved]
  - Bacterial test [Recovered/Resolved]
  - Rash [Recovered/Resolved]
  - Fatigue [Not Recovered/Not Resolved]
  - Bladder disorder [Unknown]

NARRATIVE: CASE EVENT DATE: 20151214
